FAERS Safety Report 18487373 (Version 3)
Quarter: 2021Q1

REPORT INFORMATION
  Report Type: Report from Study
  Country: None (occurrence: DE)
  Receive Date: 20201111
  Receipt Date: 20210111
  Transmission Date: 20210419
  Serious: Yes (Hospitalization, Other)
  Sender: FDA-Public Use
  Company Number: DE-ABBVIE-20K-062-3643884-00

PATIENT
  Age: 61 Year
  Sex: Male

DRUGS (2)
  1. HUMIRA [Suspect]
     Active Substance: ADALIMUMAB
     Indication: PSORIASIS
     Route: 058
     Dates: start: 20150605, end: 2019
  2. HYRIMOZ [Concomitant]
     Active Substance: ADALIMUMAB-ADAZ
     Indication: PSORIASIS
     Route: 058
     Dates: start: 2019

REACTIONS (8)
  - Cough [Unknown]
  - Blood cholesterol increased [Unknown]
  - Neoplasm malignant [Recovered/Resolved]
  - Pulmonary embolism [Recovered/Resolved]
  - Gout [Not Recovered/Not Resolved]
  - Venous occlusion [Unknown]
  - Wound [Recovering/Resolving]
  - Wound secretion [Recovered/Resolved]

NARRATIVE: CASE EVENT DATE: 2016
